FAERS Safety Report 8401238-9 (Version None)
Quarter: 2012Q2

REPORT INFORMATION
  Report Type: 
  Country: None (occurrence: None)
  Receive Date: 20120601
  Receipt Date: 20120528
  Transmission Date: 20120825
  Serious: Yes (Life-Threatening, Hospitalization, Other)
  Sender: FDA-Public Use
  Company Number: PHHY2012BR036888

PATIENT
  Sex: Male
  Weight: 150 kg

DRUGS (8)
  1. HYDROCHLOROTHIAZIDE [Concomitant]
     Indication: HYPERTENSION
     Dosage: 1 DF, DAILY
     Route: 048
     Dates: start: 19990101
  2. NEOSORO [Concomitant]
     Indication: DYSPNOEA
     Dosage: 2 DROPS IN EACH NOSTRIL 3 TIMES DAILY
     Route: 045
  3. ACETYLSALICYLIC ACID SRT [Concomitant]
     Indication: COAGULOPATHY
     Dosage: 2 DF, QD
     Route: 048
  4. FORMOTEROL FUMARATE [Suspect]
     Indication: BRONCHITIS
     Dosage: 1 DF, IN THE MORNING AND AT NIGHT
  5. FORMOTEROL FUMARATE [Suspect]
     Indication: ASTHMA
     Dosage: 1 DF, IN THE MORNING AND AT NIGHT
  6. FORMOTEROL FUMARATE [Suspect]
     Indication: DYSPNOEA
  7. CAPTOPRIL [Concomitant]
     Indication: HYPERTENSION
     Dosage: 2 DF, UNK(25 MG, 2 TABLET IN THE MORNING)
     Route: 048
     Dates: start: 19990101
  8. PLAVIX [Concomitant]
     Indication: COAGULOPATHY
     Dosage: 1 DF, QD
     Route: 048

REACTIONS (11)
  - RENAL IMPAIRMENT [None]
  - AMNESIA [None]
  - APPARENT DEATH [None]
  - APHASIA [None]
  - HERNIA OBSTRUCTIVE [None]
  - PAIN [None]
  - THROMBOSIS [None]
  - FEAR [None]
  - VOMITING [None]
  - TRANSIENT ISCHAEMIC ATTACK [None]
  - OXYGEN SATURATION DECREASED [None]
